FAERS Safety Report 10153324 (Version 1)
Quarter: 2014Q2

REPORT INFORMATION
  Report Type: Spontaneous
  Country: DE (occurrence: DE)
  Receive Date: 20140505
  Receipt Date: 20140505
  Transmission Date: 20141212
  Serious: Yes (Other)
  Sender: FDA-Public Use
  Company Number: DE-ACTAVIS-2014-08947

PATIENT
  Age: 66 Year
  Sex: Female

DRUGS (7)
  1. FENTANYL (UNKNOWN) [Suspect]
     Indication: PAIN
     Dosage: ESCALATED DOSES
     Route: 048
  2. FENTANYL (UNKNOWN) [Suspect]
     Dosage: 1600 ?G TO BE TAKEN AS REQUIRED, MAXIMUM 20 LAZENGES DAILY
     Route: 048
  3. MORPHINE SULFATE (UNKNOWN) [Suspect]
     Indication: PAIN
     Dosage: 400 MG, DAILY - MAXIMUM
     Route: 048
  4. TRIAZOLAM (UNKNOWN) [Suspect]
     Indication: SLEEP DISORDER
     Dosage: 0.25 MG, UNKNOWN
     Route: 065
  5. TILIDINE+NALOXONE [Suspect]
     Indication: PAIN
     Dosage: UNKNOWN
     Route: 065
  6. HYDROMORPHONE [Suspect]
     Indication: PAIN
     Dosage: UNKNOWN
     Route: 065
  7. OXYCODONE (UNKNOWN) [Suspect]
     Indication: PAIN

REACTIONS (9)
  - Drug dependence [Unknown]
  - Drug abuse [Unknown]
  - Incorrect drug administration duration [Unknown]
  - Drug tolerance [None]
  - Inappropriate schedule of drug administration [None]
  - Inadequate analgesia [None]
  - Medication error [None]
  - Mental disorder [None]
  - Abnormal behaviour [None]
